FAERS Safety Report 9783652 (Version 10)
Quarter: 2014Q3

REPORT INFORMATION
  Report Type: Report from Study
  Country: BE (occurrence: BE)
  Receive Date: 20131226
  Receipt Date: 20140903
  Transmission Date: 20150326
  Serious: Yes (Death, Hospitalization)
  Sender: FDA-Public Use
  Company Number: BE-BAYER-2013-156835

PATIENT
  Sex: Male
  Weight: 67.5 kg

DRUGS (14)
  1. PREDNISOLONE. [Concomitant]
     Active Substance: PREDNISOLONE
     Indication: PROSTATE CANCER
     Dosage: 20MG
     Route: 048
     Dates: start: 20131019
  2. GOSERELIN [Concomitant]
     Active Substance: GOSERELIN
     Indication: PROSTATE CANCER
     Dosage: UNK
     Dates: start: 2006
  3. LITICAN [Concomitant]
     Active Substance: ALIZAPRIDE HYDROCHLORIDE
     Indication: NAUSEA
     Dosage: 50MG, PRN
     Route: 048
     Dates: start: 20131019
  4. MORPHIN [Concomitant]
     Active Substance: MORPHINE
     Indication: BONE PAIN
     Dosage: 30 MG/DAY
     Route: 042
     Dates: start: 20131229, end: 20131231
  5. OXYNORM [Concomitant]
     Active Substance: OXYCODONE HYDROCHLORIDE
     Indication: BONE PAIN
     Dosage: 10 MG, PRN
     Route: 048
     Dates: start: 2013
  6. RADIUM-223 DICHLORIDE [Suspect]
     Active Substance: RADIUM RA-223 DICHLORIDE
     Indication: PROSTATE CANCER METASTATIC
     Dosage: 3.350MBQ
     Route: 042
     Dates: start: 20131230, end: 20131230
  7. MORPHIN [Concomitant]
     Active Substance: MORPHINE
     Indication: BONE PAIN
     Dosage: 30 MG/DAY
     Route: 058
     Dates: start: 20131231
  8. OXYNORM [Concomitant]
     Active Substance: OXYCODONE HYDROCHLORIDE
     Indication: PAIN MANAGEMENT
     Dosage: 30MG/ PRN
     Route: 048
     Dates: start: 20131019
  9. DICLOFENAC [Concomitant]
     Active Substance: DICLOFENAC
     Indication: PAIN MANAGEMENT
     Dosage: 75MG/ PRN
     Route: 048
     Dates: start: 20131019
  10. DICLOFENAC [Concomitant]
     Active Substance: DICLOFENAC
     Indication: PAIN MANAGEMENT
     Dosage: 150MG
     Dates: start: 20131019
  11. RADIUM-223 DICHLORIDE [Suspect]
     Active Substance: RADIUM RA-223 DICHLORIDE
     Indication: METASTASES TO BONE
     Dosage: 3.375MBQ
     Route: 042
     Dates: start: 20131120, end: 20131120
  12. BUPRENORPHINE HCL [Concomitant]
     Active Substance: BUPRENORPHINE HYDROCHLORIDE
     Indication: PAIN MANAGEMENT
     Dosage: UNK
     Route: 062
     Dates: start: 20131019
  13. BEFACT [Concomitant]
     Indication: NEUROPATHY PERIPHERAL
     Dosage: UNK
     Route: 048
     Dates: start: 20131019
  14. TAVANIC [Concomitant]
     Active Substance: LEVOFLOXACIN
     Indication: URINARY TRACT INFECTION
     Dosage: 500 MG/DAY
     Route: 048
     Dates: start: 20131225, end: 20131231

REACTIONS (3)
  - Subdural haematoma [Recovered/Resolved]
  - Respiratory failure [Fatal]
  - Pulmonary oedema [Recovering/Resolving]

NARRATIVE: CASE EVENT DATE: 20131203
